FAERS Safety Report 4387699-3 (Version None)
Quarter: 2004Q2

REPORT INFORMATION
  Report Type: 
  Country: None (occurrence: None)
  Receive Date: 20040630
  Receipt Date: 20040211
  Transmission Date: 20050107
  Serious: Yes (Life-Threatening, Hospitalization)
  Sender: FDA-Public Use
  Company Number: BE-MERCK-0402BEL00005

PATIENT
  Age: 68 Year
  Sex: Female

DRUGS (9)
  1. ACETAMINOPHEN [Concomitant]
     Route: 048
  2. AMIODARONE HYDROCHLORIDE [Concomitant]
     Route: 048
  3. HYDROCHLOROTHIAZIDE AND LISINOPRIL [Concomitant]
     Route: 048
  4. METOPROLOL TARTRATE [Concomitant]
     Route: 048
  5. PROPOXYPHENE HYDROCHLORIDE [Concomitant]
     Route: 048
  6. SIMVASTATIN [Suspect]
     Indication: HYPERCHOLESTEROLAEMIA
     Route: 048
     Dates: start: 20030101, end: 20040101
  7. SPIRONOLACTONE [Concomitant]
     Route: 048
  8. TETRAZEPAM [Concomitant]
     Route: 048
  9. WARFARIN SODIUM [Concomitant]
     Route: 048

REACTIONS (4)
  - AREFLEXIA [None]
  - MUSCULAR WEAKNESS [None]
  - MYALGIA [None]
  - RHABDOMYOLYSIS [None]
